FAERS Safety Report 25253505 (Version 1)
Quarter: 2025Q2

REPORT INFORMATION
  Report Type: Report from Study
  Country: US (occurrence: US)
  Receive Date: 20250430
  Receipt Date: 20250430
  Transmission Date: 20250717
  Serious: Yes (Other)
  Sender: ROCHE
  Company Number: US-ROCHE-10000265065

PATIENT
  Age: 71 Year
  Sex: Female
  Weight: 69.4 kg

DRUGS (18)
  1. ACTEMRA [Suspect]
     Active Substance: TOCILIZUMAB
     Indication: Rheumatoid arthritis
     Route: 058
  2. ACTEMRA [Suspect]
     Active Substance: TOCILIZUMAB
     Indication: Arthralgia
  3. ROPINIROLE HYDROCHLORIDE [Concomitant]
     Active Substance: ROPINIROLE HYDROCHLORIDE
     Route: 048
  4. VENLAFAXINE HCL [Concomitant]
     Active Substance: VENLAFAXINE HYDROCHLORIDE
     Route: 048
  5. BACLOFEN [Concomitant]
     Active Substance: BACLOFEN
     Route: 048
  6. OXYCODONE [Concomitant]
     Active Substance: OXYCODONE
     Route: 048
  7. MOVANTIK [Concomitant]
     Active Substance: NALOXEGOL OXALATE
     Route: 048
  8. PREDNISONE [Concomitant]
     Active Substance: PREDNISONE
     Route: 048
  9. PREDNISONE [Concomitant]
     Active Substance: PREDNISONE
     Route: 048
  10. NARCAN [Concomitant]
     Active Substance: NALOXONE HYDROCHLORIDE
     Route: 045
  11. AMLODIPINE BESYLATE [Concomitant]
     Active Substance: AMLODIPINE BESYLATE
     Route: 048
  12. LEVOTHYROXINE SODIUM [Concomitant]
     Active Substance: LEVOTHYROXINE SODIUM
     Route: 048
  13. LISINOPRIL [Concomitant]
     Active Substance: LISINOPRIL
     Route: 048
  14. LINZESS [Concomitant]
     Active Substance: LINACLOTIDE
     Route: 048
  15. TRAZODONE HCL [Concomitant]
     Active Substance: TRAZODONE HYDROCHLORIDE
     Route: 048
  16. MIRALAX [Concomitant]
     Active Substance: POLYETHYLENE GLYCOL 3350
     Route: 048
  17. CALCIUM [Concomitant]
     Active Substance: CALCIUM
     Route: 048
  18. MAGNESIUM [Concomitant]
     Active Substance: MAGNESIUM
     Route: 048

REACTIONS (43)
  - Foot deformity [Unknown]
  - Anaemia [Unknown]
  - Aortic stenosis [Unknown]
  - Aortic arteriosclerosis [Unknown]
  - Greater trochanteric pain syndrome [Unknown]
  - Carpal tunnel syndrome [Unknown]
  - Intervertebral disc disorder [Unknown]
  - Chronic kidney disease [Unknown]
  - Pain [Unknown]
  - Constipation [Unknown]
  - COVID-19 [Unknown]
  - Hypomagnesaemia [Unknown]
  - Fatigue [Unknown]
  - Pelvic pain [Unknown]
  - Cardiac murmur [Unknown]
  - Gallbladder disorder [Unknown]
  - Impaired gastric emptying [Unknown]
  - Hyperlipidaemia [Unknown]
  - Hypertensive heart disease [Unknown]
  - Pain in extremity [Unknown]
  - Steroid therapy [Unknown]
  - Lumbar radiculopathy [Unknown]
  - Major depression [Unknown]
  - Mammogram [Unknown]
  - Neuritis [Unknown]
  - Treatment noncompliance [Unknown]
  - Osteopenia [Unknown]
  - Palpitations [Unknown]
  - Renal cyst [Unknown]
  - Restless legs syndrome [Unknown]
  - Sacroiliitis [Unknown]
  - Investigation abnormal [Unknown]
  - Insomnia [Unknown]
  - Spinal stenosis [Unknown]
  - Lumbar spinal stenosis [Unknown]
  - Tarsal tunnel syndrome [Unknown]
  - Tenosynovitis [Unknown]
  - Urinary tract infection [Unknown]
  - Vitamin D deficiency [Unknown]
  - Back pain [Not Recovered/Not Resolved]
  - Cervical radiculopathy [Unknown]
  - Biliary tract disorder [Unknown]
  - Thoracic radiculopathy [Unknown]
